FAERS Safety Report 4778807-0 (Version None)
Quarter: 2005Q3

REPORT INFORMATION
  Report Type: 
  Country: None (occurrence: None)
  Receive Date: 20050922
  Receipt Date: 20050909
  Transmission Date: 20060218
  Serious: Yes (Disabling)
  Sender: FDA-Public Use
  Company Number: 2005-01831

PATIENT
  Age: 71 Year
  Sex: Female
  Weight: 87 kg

DRUGS (5)
  1. VELCADE [Suspect]
     Indication: MULTIPLE MYELOMA
     Dosage: 1.96 MG, INTRAVENOUS
     Route: 042
     Dates: start: 20050510, end: 20050817
  2. TRAMADOL HCL [Concomitant]
  3. CO-DYDRAMOL (PARACETAMOL, DIHYDROCODEINE BITARTRATE) [Concomitant]
  4. PAMIDRONATE DISODIUM [Concomitant]
  5. TEMAZEPAM [Concomitant]

REACTIONS (6)
  - BLOOD POTASSIUM INCREASED [None]
  - HAEMOGLOBIN DECREASED [None]
  - HYPERTENSION [None]
  - PLATELET COUNT DECREASED [None]
  - RETINAL VEIN OCCLUSION [None]
  - VISION BLURRED [None]
